FAERS Safety Report 5606062-8 (Version None)
Quarter: 2008Q1

REPORT INFORMATION
  Report Type: 
  Country: None (occurrence: None)
  Receive Date: 20080123
  Receipt Date: 20080123
  Transmission Date: 20080703
  Serious: No
  Sender: FDA-Public Use
  Company Number: None

PATIENT
  Age: 53 Year
  Sex: Male
  Weight: 91.6266 kg

DRUGS (2)
  1. VYTORIN [Suspect]
     Indication: BLOOD CHOLESTEROL INCREASED
     Dosage: 1/2 TABLET DAILY PO
     Route: 048
     Dates: start: 20070301, end: 20071101
  2. NIACIN [Suspect]
     Indication: BLOOD CHOLESTEROL INCREASED
     Dosage: 1 TABLET DAILY PO
     Route: 048
     Dates: start: 20070301, end: 20071101

REACTIONS (2)
  - DISTURBANCE IN ATTENTION [None]
  - FEELING ABNORMAL [None]
